FAERS Safety Report 4709534-3 (Version None)
Quarter: 2005Q3

REPORT INFORMATION
  Report Type: 
  Country: None (occurrence: None)
  Receive Date: 20050706
  Receipt Date: 20050627
  Transmission Date: 20060218
  Serious: Yes (Hospitalization)
  Sender: FDA-Public Use
  Company Number: 2005080705

PATIENT
  Age: 46 Year
  Sex: Male

DRUGS (8)
  1. ZITHROMAX [Suspect]
     Indication: LARYNGOPHARYNGITIS
     Dosage: 500 MG (QD), ORAL
     Route: 048
     Dates: start: 20031028, end: 20031029
  2. FIRSTCIN (CEFOZOPRAN HYDROCHLORIDE) [Suspect]
     Indication: PNEUMONIA
     Dosage: 1 GRAM (QD), INTRAVENOUS
     Route: 042
     Dates: start: 20031028, end: 20031029
  3. FIRSTCIN (CEFOZOPRAN HYDROCHLORIDE) [Suspect]
     Indication: URINARY TRACT INFECTION
     Dosage: 1 GRAM (QD), INTRAVENOUS
     Route: 042
     Dates: start: 20031028, end: 20031029
  4. CLEANAL (FUDOSTEINE) [Suspect]
     Indication: PRODUCTIVE COUGH
     Dosage: 3 TAB. (TID), ORAL
     Route: 048
     Dates: start: 20031028, end: 20031029
  5. LOXONIN (LOXOPROFEN SODIUM) [Suspect]
     Indication: ANALGESIC EFFECT
     Dosage: 3 TAB. (TID), ORAL
     Route: 048
     Dates: start: 20031028, end: 20031029
  6. LOXONIN (LOXOPROFEN SODIUM) [Suspect]
     Indication: ANTIPYRESIS
     Dosage: 3 TAB. (TID), ORAL
     Route: 048
     Dates: start: 20031028, end: 20031029
  7. CODEINE PHOSPHATE (CODEINE PHOSPHATE) [Suspect]
     Indication: ILL-DEFINED DISORDER
     Dosage: 6 GRAM (TID), ORAL
     Route: 048
     Dates: start: 20031028, end: 20031029
  8. VOLTAREN [Suspect]
     Indication: ANALGESIC EFFECT
     Dosage: 25 MG, RECTAL
     Route: 054
     Dates: start: 20031028, end: 20031029

REACTIONS (2)
  - DRUG ERUPTION [None]
  - FACE OEDEMA [None]
